FAERS Safety Report 25820422 (Version 1)
Quarter: 2025Q3

REPORT INFORMATION
  Report Type: Spontaneous
  Country: CN (occurrence: CN)
  Receive Date: 20250919
  Receipt Date: 20250919
  Transmission Date: 20251021
  Serious: Yes (Other)
  Sender: ROCHE
  Company Number: CN-ROCHE-10000391116

PATIENT
  Age: 21 Year
  Sex: Male

DRUGS (4)
  1. MABTHERA [Suspect]
     Active Substance: RITUXIMAB
     Indication: Bone marrow transplant
     Route: 042
     Dates: start: 20250806, end: 20250806
  2. MABTHERA [Suspect]
     Active Substance: RITUXIMAB
     Indication: Congenital dyskeratosis
     Dosage: ON 31-JUL-2025, HE BEGAN TO RECEIVED RITUXIMAB 100 MG ONCE A WEEK
     Route: 042
     Dates: start: 20250731, end: 20250806
  3. MABTHERA [Suspect]
     Active Substance: RITUXIMAB
     Indication: Epstein-Barr virus infection
  4. MABTHERA [Suspect]
     Active Substance: RITUXIMAB
     Indication: Pneumonia

REACTIONS (3)
  - Chills [Recovered/Resolved]
  - Hyperpyrexia [Recovered/Resolved]
  - Off label use [Unknown]

NARRATIVE: CASE EVENT DATE: 20250806
